FAERS Safety Report 25151328 (Version 1)
Quarter: 2025Q2

REPORT INFORMATION
  Report Type: Report from Study
  Country: EG (occurrence: EG)
  Receive Date: 20250402
  Receipt Date: 20250402
  Transmission Date: 20250717
  Serious: Yes (Hospitalization)
  Sender: BIOGEN
  Company Number: EG-BIOGEN-2025BI01304087

PATIENT
  Age: 0 Year
  Sex: Female
  Weight: 3 kg

DRUGS (2)
  1. TYSABRI [Suspect]
     Active Substance: NATALIZUMAB
     Indication: Maternal exposure timing unspecified
     Route: 050
     Dates: start: 2022
  2. TYSABRI [Suspect]
     Active Substance: NATALIZUMAB
     Route: 050
     Dates: start: 202211, end: 202306

REACTIONS (7)
  - Gastroenteritis viral [Recovered/Resolved]
  - Dehydration [Recovered/Resolved]
  - Metabolic acidosis [Recovered/Resolved]
  - Neonatal respiratory distress [Recovered/Resolved]
  - Foetal exposure during pregnancy [Recovered/Resolved]
  - Jaundice neonatal [Recovered/Resolved]
  - Exposure via breast milk [Recovered/Resolved]

NARRATIVE: CASE EVENT DATE: 20221101
